FAERS Safety Report 5160368-8 (Version None)
Quarter: 2006Q4

REPORT INFORMATION
  Report Type: 
  Country: None (occurrence: None)
  Receive Date: 20061121
  Receipt Date: 20061109
  Transmission Date: 20070319
  Serious: Yes (Hospitalization)
  Sender: FDA-Public Use
  Company Number: 2006PV024894

PATIENT
  Age: 87 Year
  Sex: Female
  Weight: 95.2554 kg

DRUGS (3)
  1. BYETTA [Suspect]
     Indication: DIABETES MELLITUS NON-INSULIN-DEPENDENT
     Dosage: 5 MCG BID SC
     Route: 058
     Dates: start: 20060701, end: 20060101
  2. BYETTA [Suspect]
     Indication: DIABETES MELLITUS NON-INSULIN-DEPENDENT
     Dosage: 5 MCG BID SC
     Route: 058
     Dates: start: 20060901
  3. AVANDARYL [Concomitant]

REACTIONS (7)
  - FALL [None]
  - JOINT INJURY [None]
  - NAUSEA [None]
  - OEDEMA PERIPHERAL [None]
  - TACHYCARDIA [None]
  - WEIGHT DECREASED [None]
  - WRIST FRACTURE [None]
